FAERS Safety Report 9867990 (Version 1)
Quarter: 2014Q1

REPORT INFORMATION
  Report Type: Spontaneous
  Country: US (occurrence: US)
  Receive Date: 20140204
  Receipt Date: 20140204
  Transmission Date: 20141002
  Serious: Yes (Hospitalization)
  Sender: FDA-Public Use
  Company Number: PHHY2014US011768

PATIENT
  Age: 84 Year
  Sex: Male

DRUGS (23)
  1. IMATINIB [Suspect]
     Indication: CHRONIC MYELOID LEUKAEMIA
     Dosage: 400 MG, DAILY
  2. NILOTINIB [Suspect]
     Indication: CHRONIC MYELOID LEUKAEMIA
     Dosage: 300 MG, BID
  3. NILOTINIB [Suspect]
     Dosage: 150 MG, BID
  4. NILOTINIB [Suspect]
     Dosage: 150 MG, DAILY FOR 2 YEARS
  5. BOSUTINIB [Interacting]
     Dosage: 300 MG, DAILY
  6. DASATINIB [Suspect]
     Dosage: 100 MG, DAILY
  7. DASATINIB [Suspect]
     Dosage: 70 MG, DAILY
  8. DASATINIB [Suspect]
     Dosage: 25 MG, DAILY
  9. DASATINIB [Suspect]
     Dosage: 25 MG, QOD
  10. WARFARIN [Interacting]
     Dosage: 5 MG, QD
  11. ALLOPURINOL [Concomitant]
     Dosage: 100 MG, QD
  12. ASPIRIN [Concomitant]
     Dosage: 81 MG, QD
  13. CITALOPRAM [Concomitant]
     Dosage: 10 MG, QD
  14. DILTIAZEM [Concomitant]
     Dosage: 240 MG, QD
  15. DIGOXIN [Concomitant]
     Dosage: 125 UG, QD
  16. FUROSEMIDE [Concomitant]
     Dosage: 40 MG, QD
  17. LOVASTATIN [Concomitant]
     Dosage: 40 MG, QD
  18. METOPROLOL [Concomitant]
     Dosage: 25 MG, QD
  19. MIRTAZAPINE [Concomitant]
     Dosage: 30 MG, QD
  20. TAMSULOSIN [Concomitant]
     Dosage: 0.4 MG, QD
  21. OXYCODONE [Concomitant]
     Dosage: 5 MG, PRN
  22. SENNA [Concomitant]
     Dosage: 8.6 MG, PRN
  23. POLYETHYLENE GLYCOL [Concomitant]

REACTIONS (17)
  - Gangrene [Unknown]
  - Arteriosclerosis [Unknown]
  - International normalised ratio increased [Unknown]
  - Peripheral arterial occlusive disease [Unknown]
  - Skin ulcer [Unknown]
  - Thrombocytopenia [Unknown]
  - Leukaemia recurrent [Unknown]
  - Chronic myeloid leukaemia [Unknown]
  - Pancytopenia [Unknown]
  - Pleural effusion [Recovering/Resolving]
  - Pulmonary haemorrhage [Recovering/Resolving]
  - Hypoxia [Recovering/Resolving]
  - Haemoptysis [Recovering/Resolving]
  - Dyspnoea [Recovering/Resolving]
  - Atrial fibrillation [Unknown]
  - Drug interaction [Unknown]
  - No therapeutic response [Unknown]
